FAERS Safety Report 21275379 (Version 3)
Quarter: 2024Q2

REPORT INFORMATION
  Report Type: Report from Study
  Country: US (occurrence: US)
  Receive Date: 20220831
  Receipt Date: 20240618
  Transmission Date: 20240716
  Serious: Yes (Hospitalization)
  Sender: FDA-Public Use
  Company Number: US-TAKEDA-2022TUS060089

PATIENT
  Age: 96 Year
  Sex: Male
  Weight: 72.562 kg

DRUGS (2)
  1. IXAZOMIB [Suspect]
     Active Substance: IXAZOMIB
     Indication: Plasma cell myeloma
     Dosage: 2.3 MILLIGRAM
     Route: 048
     Dates: start: 20220430
  2. IXAZOMIB [Suspect]
     Active Substance: IXAZOMIB
     Indication: Prostate cancer
     Dosage: 2.3 MILLIGRAM
     Route: 048
     Dates: start: 202209

REACTIONS (4)
  - Fall [Unknown]
  - Peripheral swelling [Recovering/Resolving]
  - Cardiac disorder [Unknown]
  - Product use in unapproved indication [Unknown]

NARRATIVE: CASE EVENT DATE: 20220827
